FAERS Safety Report 5496759-5 (Version None)
Quarter: 2007Q4

REPORT INFORMATION
  Report Type: 
  Country: None (occurrence: None)
  Receive Date: 20071025
  Receipt Date: 20070817
  Transmission Date: 20080405
  Serious: No
  Sender: FDA-Public Use
  Company Number: A0669498A

PATIENT
  Age: 79 Year
  Sex: Male

DRUGS (5)
  1. ADVAIR DISKUS 100/50 [Suspect]
     Indication: CHRONIC OBSTRUCTIVE PULMONARY DISEASE
     Dosage: 1PUFF TWICE PER DAY
     Route: 055
  2. ADVAIR DISKUS 100/50 [Suspect]
     Dosage: 1PUFF PER DAY
     Route: 055
     Dates: start: 20070813
  3. PRONEB [Concomitant]
  4. PROSCAR [Concomitant]
  5. ASPIRIN [Concomitant]

REACTIONS (4)
  - DIZZINESS [None]
  - DRY THROAT [None]
  - HYPERTENSION [None]
  - THROAT IRRITATION [None]
